FAERS Safety Report 6072771-2 (Version None)
Quarter: 2009Q1

REPORT INFORMATION
  Report Type: 
  Country: None (occurrence: None)
  Receive Date: 20090210
  Receipt Date: 20090130
  Transmission Date: 20090719
  Serious: No
  Sender: FDA-Public Use
  Company Number: AT-ELI_LILLY_AND_COMPANY-AT200901001169

PATIENT
  Age: 26 Year
  Sex: Female

DRUGS (8)
  1. ZYPREXA [Suspect]
     Indication: PSYCHOTIC DISORDER
     Dosage: 10 MG, DAILY (1/D)
     Route: 048
     Dates: end: 20090108
  2. ZYPREXA [Suspect]
     Dosage: 5 MG, DAILY (1/D)
     Route: 048
     Dates: start: 20090109, end: 20090110
  3. ZYPREXA [Suspect]
     Dosage: 5 MG, UNK
     Dates: start: 20090115
  4. ZYPREXA [Suspect]
     Dosage: 2.5 MG, DAILY (1/D)
  5. ABILIFY [Concomitant]
     Dosage: 15 MG, DAILY (1/D)
     Route: 048
     Dates: end: 20090114
  6. ABILIFY [Concomitant]
     Dosage: 10 MG, DAILY (1/D)
     Route: 048
  7. ABILIFY [Concomitant]
     Dosage: 10 MG, DAILY (1/D)
     Route: 048
  8. ABILIFY [Concomitant]
     Dosage: 25 MG, DAILY (1/D)

REACTIONS (2)
  - DISEASE RECURRENCE [None]
  - LEUKOPENIA [None]
